FAERS Safety Report 25109827 (Version 1)
Quarter: 2025Q1

REPORT INFORMATION
  Report Type: Spontaneous
  Country: GB (occurrence: GB)
  Receive Date: 20250324
  Receipt Date: 20250324
  Transmission Date: 20250408
  Serious: Yes (Other)
  Sender: ALKEM
  Company Number: None

PATIENT
  Age: 33 Year
  Sex: Female

DRUGS (1)
  1. QUETIAPINE FUMARATE [Suspect]
     Active Substance: QUETIAPINE FUMARATE
     Indication: Bipolar I disorder
     Route: 065
     Dates: start: 20240819, end: 20241021

REACTIONS (2)
  - Hypertension [Recovered/Resolved with Sequelae]
  - Tachycardia [Recovered/Resolved]

NARRATIVE: CASE EVENT DATE: 20240903
